FAERS Safety Report 26142442 (Version 1)
Quarter: 2025Q4

REPORT INFORMATION
  Report Type: Spontaneous
  Country: US (occurrence: US)
  Receive Date: 20251210
  Receipt Date: 20251210
  Transmission Date: 20260118
  Serious: Yes (Other)
  Sender: BAXTER
  Company Number: US-BAXTER-2025BAX025519

PATIENT
  Age: 13 Year
  Sex: Male

DRUGS (1)
  1. PENICILLIN G [Suspect]
     Active Substance: PENICILLIN G
     Dosage: UNK
     Route: 030

REACTIONS (8)
  - Embolia cutis medicamentosa [Recovered/Resolved]
  - Myositis-like syndrome [Recovered/Resolved]
  - Injection site pain [Recovered/Resolved]
  - Injection site swelling [Recovered/Resolved]
  - Injection site discolouration [Recovered/Resolved]
  - Hypoaesthesia [Recovered/Resolved]
  - Erythema [Recovered/Resolved]
  - Tenderness [Recovered/Resolved]
